FAERS Safety Report 4429555-8 (Version None)
Quarter: 2004Q3

REPORT INFORMATION
  Report Type: 
  Country: None (occurrence: None)
  Receive Date: 20040819
  Receipt Date: 20040806
  Transmission Date: 20050211
  Serious: Yes (Hospitalization)
  Sender: FDA-Public Use
  Company Number: JP-GLAXOSMITHKLINE-B0341998A

PATIENT
  Age: 32 Year
  Sex: Female

DRUGS (2)
  1. FLUTICASONE PROPIONATE [Suspect]
     Indication: ASTHMA
     Dosage: 100MCG TWICE PER DAY
     Route: 055
     Dates: start: 20020807, end: 20020906
  2. THEO SLOW [Concomitant]
     Indication: ASTHMA
     Route: 048
     Dates: start: 20020805, end: 20040210

REACTIONS (3)
  - ASTHMA [None]
  - DRUG INEFFECTIVE [None]
  - INFECTION [None]
